FAERS Safety Report 5843933-1 (Version None)
Quarter: 2008Q3

REPORT INFORMATION
  Report Type: 
  Country: None (occurrence: None)
  Receive Date: 20080813
  Receipt Date: 20080801
  Transmission Date: 20090109
  Serious: Yes (Life-Threatening, Hospitalization)
  Sender: FDA-Public Use
  Company Number: JP-ROCHE-547052

PATIENT
  Sex: Male
  Weight: 48 kg

DRUGS (8)
  1. TAMIFLU [Suspect]
     Route: 048
     Dates: start: 20080207, end: 20080208
  2. PANALDINE [Suspect]
     Indication: DRUG USE FOR UNKNOWN INDICATION
     Route: 048
  3. MAO-BUSHI-SAISHIN-TO [Concomitant]
     Dosage: FORM: ORAL FORMULATION (NOT OTHERWISE SPECIFIED).
     Route: 048
  4. TAKEPRON [Concomitant]
     Route: 048
  5. ADALAT [Concomitant]
     Dosage: DOSE FORM REPORTED: SUSTAINED RELEASE TABLET.
     Route: 048
  6. PROMAC [Concomitant]
     Route: 048
  7. CALTAN [Concomitant]
     Route: 048
  8. HALCION [Concomitant]
     Route: 048

REACTIONS (1)
  - PANCYTOPENIA [None]
